FAERS Safety Report 10670473 (Version 1)
Quarter: 2014Q4

REPORT INFORMATION
  Report Type: Spontaneous
  Country: JP (occurrence: JP)
  Receive Date: 20141223
  Receipt Date: 20141223
  Transmission Date: 20150529
  Serious: Yes (Other)
  Sender: FDA-Public Use
  Company Number: JP-TEVA-528652ISR

PATIENT
  Age: 70 Year

DRUGS (1)
  1. THEOPHYLLINE TAB.TYK [Suspect]
     Active Substance: THEOPHYLLINE ANHYDROUS
     Dosage: DOSAGE AND FERQUNECY UNKNOWN
     Route: 048

REACTIONS (1)
  - Depressed level of consciousness [Unknown]
